FAERS Safety Report 9683431 (Version 1)
Quarter: 2013Q4

REPORT INFORMATION
  Report Type: Spontaneous
  Country: US (occurrence: US)
  Receive Date: 20131112
  Receipt Date: 20131112
  Transmission Date: 20140711
  Serious: No
  Sender: FDA-Public Use
  Company Number: US-ROXANE LABORATORIES, INC.-2013-RO-01819RO

PATIENT
  Age: 33 Year
  Sex: Female

DRUGS (1)
  1. PREDNISONE [Suspect]
     Indication: INFLAMMATION
     Dosage: 50 MG
     Route: 048
     Dates: start: 20131105

REACTIONS (3)
  - Headache [Unknown]
  - Nausea [Unknown]
  - Dizziness [Unknown]
